FAERS Safety Report 6288305-3 (Version None)
Quarter: 2009Q3

REPORT INFORMATION
  Report Type: 
  Country: None (occurrence: None)
  Receive Date: 20090729
  Receipt Date: 20090723
  Transmission Date: 20100115
  Serious: Yes (Hospitalization, Other)
  Sender: FDA-Public Use
  Company Number: US-WYE-H07827409

PATIENT
  Sex: Female

DRUGS (6)
  1. PREMPRO [Suspect]
     Indication: HORMONE REPLACEMENT THERAPY
  2. ESTRATEST H.S. [Suspect]
  3. ESTRADIOL [Suspect]
  4. ESTRATEST [Suspect]
  5. PREMARIN [Suspect]
  6. ESTRACE [Suspect]

REACTIONS (1)
  - NON-HODGKIN'S LYMPHOMA [None]
